APPROVED DRUG PRODUCT: CHLORZOXAZONE
Active Ingredient: CHLORZOXAZONE
Strength: 500MG
Dosage Form/Route: TABLET;ORAL
Application: A214365 | Product #001
Applicant: THE ACME LABORATORIES LTD
Approved: Apr 27, 2023 | RLD: No | RS: No | Type: DISCN